FAERS Safety Report 6862706-4 (Version None)
Quarter: 2010Q3

REPORT INFORMATION
  Report Type: 
  Country: None (occurrence: None)
  Receive Date: 20100716
  Receipt Date: 20100712
  Transmission Date: 20110219
  Serious: Yes (Other)
  Sender: FDA-Public Use
  Company Number: 2010SP035356

PATIENT
  Age: 51 Year
  Sex: Female
  Weight: 66 kg

DRUGS (6)
  1. CELESTONE [Suspect]
     Indication: PREMEDICATION
     Dates: start: 20100616, end: 20100616
  2. BI PROFENID [Concomitant]
  3. LEVOTHYROXINE SODIUM [Concomitant]
  4. DOLIPRANE [Concomitant]
  5. AVAMYS [Concomitant]
  6. AERIUS [Concomitant]

REACTIONS (6)
  - COUGH [None]
  - DRUG HYPERSENSITIVITY [None]
  - DYSPNOEA [None]
  - ERYTHEMA [None]
  - FLUSHING [None]
  - SWELLING FACE [None]
